FAERS Safety Report 21418500 (Version 3)
Quarter: 2023Q1

REPORT INFORMATION
  Report Type: Spontaneous
  Country: PT (occurrence: PT)
  Receive Date: 20221006
  Receipt Date: 20230302
  Transmission Date: 20230418
  Serious: Yes (Other)
  Sender: FDA-Public Use
  Company Number: PT-GILEAD-2022-0600552

PATIENT
  Age: 49 Year
  Sex: Female

DRUGS (1)
  1. TRODELVY [Suspect]
     Active Substance: SACITUZUMAB GOVITECAN-HZIY
     Indication: Triple negative breast cancer
     Dosage: 1 CYCLE, D1 AND D8
     Route: 065
     Dates: start: 20220728, end: 20220804

REACTIONS (11)
  - Disease progression [Not Recovered/Not Resolved]
  - Hyperbilirubinaemia [Unknown]
  - Neutropenia [Unknown]
  - Blood bilirubin increased [Not Recovered/Not Resolved]
  - General physical health deterioration [Unknown]
  - Diarrhoea [Recovering/Resolving]
  - Hypervolaemia [Unknown]
  - Hyponatraemia [Unknown]
  - Aspartate aminotransferase increased [Unknown]
  - Alanine aminotransferase increased [Unknown]
  - Gamma-glutamyltransferase increased [Unknown]
